FAERS Safety Report 7978074-0 (Version None)
Quarter: 2011Q4

REPORT INFORMATION
  Report Type: 
  Country: None (occurrence: None)
  Receive Date: 20111214
  Receipt Date: 20111130
  Transmission Date: 20120403
  Serious: Yes (Other)
  Sender: FDA-Public Use
  Company Number: ZA-AMGEN-ZAFSP2011063775

PATIENT
  Age: 20 Year
  Sex: Female
  Weight: 60 kg

DRUGS (2)
  1. METHOTREXATE SODIUM [Suspect]
     Indication: PRODUCT USED FOR UNKNOWN INDICATION
     Dosage: 28 MG, WEEKLY
     Route: 048
     Dates: start: 20010101, end: 20111011
  2. ENBREL [Suspect]
     Indication: RHEUMATOID ARTHRITIS
     Dosage: 25 MG, 2 TIMES/WK
     Route: 058
     Dates: start: 20070401

REACTIONS (2)
  - ABORTION SPONTANEOUS [None]
  - MATERNAL EXPOSURE DURING PREGNANCY [None]
